FAERS Safety Report 8621546-6 (Version None)
Quarter: 2012Q3

REPORT INFORMATION
  Report Type: 
  Country: None (occurrence: None)
  Receive Date: 20120824
  Receipt Date: 20120821
  Transmission Date: 20120928
  Serious: Yes (Hospitalization)
  Sender: FDA-Public Use
  Company Number: CHPA2012US018657

PATIENT
  Age: 70 Year
  Sex: Male

DRUGS (2)
  1. GAS-X [Suspect]
     Indication: FLATULENCE
     Dosage: UNK, UNK
     Route: 048
  2. GAS-X [Suspect]
     Dosage: 2 DF, PRN
     Route: 048
     Dates: start: 20100101

REACTIONS (3)
  - DRUG INEFFECTIVE [None]
  - LARGE INTESTINE PERFORATION [None]
  - DISEASE RECURRENCE [None]
